FAERS Safety Report 19898275 (Version 1)
Quarter: 2021Q3

REPORT INFORMATION
  Report Type: Spontaneous
  Country: CN (occurrence: CN)
  Receive Date: 20210929
  Receipt Date: 20210929
  Transmission Date: 20211014
  Serious: Yes (Other)
  Sender: FDA-Public Use
  Company Number: CN-ROCHE-2919528

PATIENT
  Sex: Female

DRUGS (18)
  1. DOCETAXEL. [Concomitant]
     Active Substance: DOCETAXEL
     Dosage: TH
     Route: 041
     Dates: start: 201801, end: 201803
  2. LETROZOLE. [Concomitant]
     Active Substance: LETROZOLE
     Indication: INVASIVE DUCTAL BREAST CARCINOMA
     Route: 048
     Dates: start: 201503, end: 201506
  3. GEMCITABINE. [Suspect]
     Active Substance: GEMCITABINE
     Indication: INVASIVE DUCTAL BREAST CARCINOMA
     Route: 041
     Dates: start: 201411, end: 201501
  4. ETOPOSIDE. [Suspect]
     Active Substance: ETOPOSIDE
     Indication: INVASIVE DUCTAL BREAST CARCINOMA
     Route: 048
     Dates: start: 201602, end: 201611
  5. DOCETAXEL. [Concomitant]
     Active Substance: DOCETAXEL
     Indication: INVASIVE DUCTAL BREAST CARCINOMA
     Dosage: TX
     Route: 041
     Dates: start: 201404, end: 201409
  6. FULVESTRANT. [Concomitant]
     Active Substance: FULVESTRANT
     Indication: INVASIVE DUCTAL BREAST CARCINOMA
     Route: 030
     Dates: start: 201804, end: 202007
  7. XELODA [Suspect]
     Active Substance: CAPECITABINE
     Route: 048
     Dates: start: 201409, end: 201411
  8. VINORELBINE [Suspect]
     Active Substance: VINORELBINE TARTRATE
     Indication: INVASIVE DUCTAL BREAST CARCINOMA
     Route: 041
     Dates: start: 201501, end: 201503
  9. APATINIB [Concomitant]
     Active Substance: APATINIB
     Dates: start: 201808, end: 201810
  10. XELODA [Suspect]
     Active Substance: CAPECITABINE
     Indication: INVASIVE DUCTAL BREAST CARCINOMA
     Dosage: TX
     Route: 048
     Dates: start: 201404, end: 201409
  11. HERCEPTIN [Suspect]
     Active Substance: TRASTUZUMAB
     Indication: INVASIVE DUCTAL BREAST CARCINOMA
     Dosage: TH , 400 MG AT FIRST DOSE, THEN 315MG
     Route: 041
     Dates: start: 201801, end: 201803
  12. VINORELBINE [Suspect]
     Active Substance: VINORELBINE TARTRATE
     Route: 041
     Dates: start: 201507, end: 201511
  13. NAB?PACLITAXEL [Concomitant]
     Active Substance: PACLITAXEL
     Route: 041
     Dates: start: 202012, end: 202105
  14. FULVESTRANT. [Concomitant]
     Active Substance: FULVESTRANT
     Indication: INVASIVE DUCTAL BREAST CARCINOMA
  15. APATINIB [Concomitant]
     Active Substance: APATINIB
     Indication: INVASIVE DUCTAL BREAST CARCINOMA
     Route: 048
     Dates: start: 201709, end: 201801
  16. TAMOXIFEN CITRATE. [Concomitant]
     Active Substance: TAMOXIFEN CITRATE
  17. NAB?PACLITAXEL [Concomitant]
     Active Substance: PACLITAXEL
     Indication: INVASIVE DUCTAL BREAST CARCINOMA
     Dosage: 150MG DAY 1, 120MG DAY 8
     Route: 041
     Dates: start: 201512, end: 201602
  18. APATINIB [Concomitant]
     Active Substance: APATINIB
     Indication: INVASIVE DUCTAL BREAST CARCINOMA
     Route: 048
     Dates: start: 201804, end: 202007

REACTIONS (3)
  - Drug resistance [Unknown]
  - Asthenia [Unknown]
  - Myelosuppression [Unknown]
